FAERS Safety Report 5970979-5 (Version None)
Quarter: 2008Q4

REPORT INFORMATION
  Report Type: 
  Country: None (occurrence: None)
  Receive Date: 20081128
  Receipt Date: 20081120
  Transmission Date: 20090506
  Serious: Yes (Other)
  Sender: FDA-Public Use
  Company Number: PHBS2008CA06447

PATIENT
  Age: 48 Year
  Sex: Male

DRUGS (6)
  1. CLOZAPINE [Suspect]
     Indication: SCHIZOPHRENIA, PARANOID TYPE
     Dosage: 275 MG/DAY
  2. MODAFINIL [Suspect]
     Indication: SOMNOLENCE
     Dosage: 100 MG, BID
  3. CITALOPRAM HYDROBROMIDE [Concomitant]
     Dosage: 40 MG/DAY
  4. FLUDROCORTISONE ACETATE [Concomitant]
     Dosage: 0.1 MG, BID
  5. MULTIVITAMINS, COMBINATIONS [Concomitant]
  6. LOPERAMIDE HCL [Concomitant]

REACTIONS (4)
  - ABNORMAL BEHAVIOUR [None]
  - AGGRESSION [None]
  - CONFUSIONAL STATE [None]
  - DRUG LEVEL ABOVE THERAPEUTIC [None]
